FAERS Safety Report 8421846-9 (Version None)
Quarter: 2012Q2

REPORT INFORMATION
  Report Type: 
  Country: None (occurrence: None)
  Receive Date: 20120608
  Receipt Date: 20120523
  Transmission Date: 20120825
  Serious: Yes (Other)
  Sender: FDA-Public Use
  Company Number: US-US-EMD SERONO, INC.-7135030

PATIENT
  Sex: Female
  Weight: 57 kg

DRUGS (17)
  1. ATIVAN [Concomitant]
     Indication: PREMEDICATION
     Route: 048
     Dates: start: 20070601, end: 20091201
  2. NEURONTIN [Concomitant]
     Indication: DYSAESTHESIA
     Route: 048
     Dates: start: 20040510
  3. DURAGESIC-100 [Concomitant]
     Indication: BACK PAIN
     Route: 062
     Dates: start: 20080327, end: 20080826
  4. PLACEBO [Suspect]
     Indication: MULTIPLE SCLEROSIS
     Dates: start: 20080201, end: 20080208
  5. ADVAIR DISKUS 100/50 [Concomitant]
     Indication: ASTHMA
     Dates: start: 19931201, end: 20071001
  6. BACLOFEN [Concomitant]
     Indication: MUSCLE SPASTICITY
     Route: 048
     Dates: start: 20011001
  7. WELLBUTRIN [Concomitant]
     Indication: DEPRESSION
     Route: 048
     Dates: start: 20070419
  8. DURAGESIC-100 [Concomitant]
     Indication: NECK PAIN
     Route: 062
     Dates: start: 20080827
  9. REBIF [Suspect]
     Indication: MULTIPLE SCLEROSIS
     Route: 058
     Dates: start: 20070129
  10. MEDROL [Concomitant]
     Indication: PRODUCT USED FOR UNKNOWN INDICATION
     Route: 048
     Dates: start: 20080326, end: 20080330
  11. PROVIGIL [Concomitant]
     Indication: FATIGUE
     Route: 048
     Dates: start: 20060623
  12. IRON SUPPLEMENT [Concomitant]
     Indication: IRON DEFICIENCY ANAEMIA
     Route: 048
     Dates: start: 20061201, end: 20091201
  13. DOCUSATE SODIUM [Concomitant]
     Indication: CONSTIPATION
     Route: 048
     Dates: start: 20060401, end: 20091201
  14. VITAMIN B-12 [Concomitant]
     Indication: VITAMIN B12 DEFICIENCY
     Route: 030
     Dates: start: 20070301
  15. DURAGESIC-100 [Concomitant]
     Route: 062
     Dates: start: 20060928, end: 20080326
  16. MULTI-VITAMIN [Concomitant]
     Indication: VITAMIN SUPPLEMENTATION
     Route: 048
     Dates: start: 20060401
  17. HYDROCODONE [Concomitant]
     Indication: BACK PAIN
     Route: 048
     Dates: start: 20031030

REACTIONS (1)
  - DYSPLASTIC NAEVUS [None]
